FAERS Safety Report 16625679 (Version 1)
Quarter: 2019Q3

REPORT INFORMATION
  Report Type: Spontaneous
  Country: US (occurrence: US)
  Receive Date: 20190611
  Receipt Date: 20190611
  Transmission Date: 20191004
  Serious: Yes (Life-Threatening, Disabling)
  Sender: FDA-Public Use
  Company Number: None

PATIENT
  Age: 58 Year
  Sex: Female
  Weight: 43.54 kg

DRUGS (3)
  1. GEODON [Suspect]
     Active Substance: ZIPRASIDONE HYDROCHLORIDE\ZIPRASIDONE MESYLATE
     Route: 048
     Dates: end: 201103
  2. ZYPREXA [Suspect]
     Active Substance: OLANZAPINE
     Indication: HALLUCINATION, AUDITORY
     Dosage: ?          QUANTITY:10 MG MILLIGRAM(S);?
     Route: 058
  3. INVEGA [Suspect]
     Active Substance: PALIPERIDONE
     Dates: start: 2007, end: 201007

REACTIONS (7)
  - Type 2 diabetes mellitus [None]
  - Dehydration [None]
  - Lymphadenopathy [None]
  - Arthropathy [None]
  - Somnolence [None]
  - Swollen tongue [None]
  - Hypoaesthesia [None]

NARRATIVE: CASE EVENT DATE: 20070701
